FAERS Safety Report 9169894 (Version 1)
Quarter: 2013Q1

REPORT INFORMATION
  Report Type: Spontaneous
  Country: US (occurrence: None)
  Receive Date: 20130314
  Receipt Date: 20130314
  Transmission Date: 20140127
  Serious: Yes (Disabling)
  Sender: FDA-Public Use
  Company Number: None

PATIENT
  Age: 41 Year
  Sex: Male
  Weight: 77.57 kg

DRUGS (1)
  1. PROPECIA [Suspect]
     Indication: ALOPECIA
     Dosage: 1 DOSE DAILY PO
     Route: 048
     Dates: start: 20030615, end: 20041110

REACTIONS (3)
  - Loss of libido [None]
  - Amnesia [None]
  - Sensory loss [None]
